FAERS Safety Report 20148845 (Version 1)
Quarter: 2021Q4

REPORT INFORMATION
  Report Type: Spontaneous
  Country: US (occurrence: US)
  Receive Date: 20211204
  Receipt Date: 20211204
  Transmission Date: 20220303
  Serious: No
  Sender: FDA-Public Use
  Company Number: US-SA-SAC20211130000371

PATIENT
  Age: 48 Year
  Sex: Female

DRUGS (28)
  1. DUPIXENT [Suspect]
     Active Substance: DUPILUMAB
     Indication: Asthma
     Dosage: 300 MG, QOW
     Route: 058
     Dates: start: 20201021
  2. ALBUTEROL SULFATE [Concomitant]
     Active Substance: ALBUTEROL SULFATE
  3. ASMANEX [Concomitant]
     Active Substance: MOMETASONE FUROATE
  4. ATORVASTATIN [Concomitant]
     Active Substance: ATORVASTATIN
  5. DICYCLOMINE [Concomitant]
     Active Substance: DICYCLOMINE HYDROCHLORIDE
  6. ERYTHROMYCIN [Concomitant]
     Active Substance: ERYTHROMYCIN
  7. FLUOXETINE [Concomitant]
     Active Substance: FLUOXETINE HYDROCHLORIDE
  8. FLUTICASONE [Concomitant]
     Active Substance: FLUTICASONE
  9. GABAPENTIN [Concomitant]
     Active Substance: GABAPENTIN
  10. HYDROCODONE BITARTRATE AND ACETAMINOPHEN [Concomitant]
     Active Substance: ACETAMINOPHEN\HYDROCODONE BITARTRATE
  11. LISINOPRIL [Concomitant]
     Active Substance: LISINOPRIL
  12. OMEPRAZOLE [Concomitant]
     Active Substance: OMEPRAZOLE
  13. ONDANSETRON [Concomitant]
     Active Substance: ONDANSETRON
  14. PREDNISOLONE [Concomitant]
     Active Substance: PREDNISOLONE
  15. RIZATRIPTAN [Concomitant]
     Active Substance: RIZATRIPTAN
  16. SPIRIVA [Concomitant]
     Active Substance: TIOTROPIUM BROMIDE MONOHYDRATE
  17. SUCRALFATE [Concomitant]
     Active Substance: SUCRALFATE
  18. SYMBICORT [Concomitant]
     Active Substance: BUDESONIDE\FORMOTEROL FUMARATE DIHYDRATE
  19. SYNTHROID [Concomitant]
     Active Substance: LEVOTHYROXINE SODIUM
  20. SUMATRIPTAN [Concomitant]
     Active Substance: SUMATRIPTAN
  21. CYCLOBENZAPRINE [Concomitant]
     Active Substance: CYCLOBENZAPRINE
  22. EZETIMIBE [Concomitant]
     Active Substance: EZETIMIBE
  23. FOLIC ACID [Concomitant]
     Active Substance: FOLIC ACID
  24. FUROSEMIDE [Concomitant]
     Active Substance: FUROSEMIDE
  25. ETHINYL ESTRADIOL\NORETHINDRONE ACETATE [Concomitant]
     Active Substance: ETHINYL ESTRADIOL\NORETHINDRONE ACETATE
  26. METFORMIN [Concomitant]
     Active Substance: METFORMIN HYDROCHLORIDE
  27. MONTELUKAST [Concomitant]
     Active Substance: MONTELUKAST SODIUM
  28. POTASSIUM CHLORIDE [Concomitant]
     Active Substance: POTASSIUM CHLORIDE

REACTIONS (2)
  - Sinus disorder [Unknown]
  - Asthma [Unknown]

NARRATIVE: CASE EVENT DATE: 20210101
